FAERS Safety Report 7002319-7 (Version None)
Quarter: 2010Q3

REPORT INFORMATION
  Report Type: 
  Country: None (occurrence: None)
  Receive Date: 20100917
  Receipt Date: 20100917
  Transmission Date: 20110219
  Serious: Yes (Disabling)
  Sender: FDA-Public Use
  Company Number: None

PATIENT
  Sex: Male
  Weight: 89.8122 kg

DRUGS (1)
  1. DEKANG/BOGE NICOTINE ELIQUID 18MG/ML DEKANG/BOGE [Suspect]
     Indication: DRUG WITHDRAWAL SYNDROME
     Dosage: 18MG/ML DAILY INHAL
     Route: 055
     Dates: start: 20090702, end: 20100829

REACTIONS (2)
  - BLINDNESS UNILATERAL [None]
  - CATARACT SUBCAPSULAR [None]
